FAERS Safety Report 17465602 (Version 2)
Quarter: 2020Q2

REPORT INFORMATION
  Report Type: Spontaneous
  Country: US (occurrence: US)
  Receive Date: 20200227
  Receipt Date: 20200501
  Transmission Date: 20200713
  Serious: Yes (Hospitalization, Other)
  Sender: FDA-Public Use
  Company Number: US-DRREDDYS-USA/USA/20/0120116

PATIENT
  Age: 65 Year
  Sex: Female

DRUGS (1)
  1. METOPROLOL SUCCINATE. [Suspect]
     Active Substance: METOPROLOL SUCCINATE
     Indication: ANXIETY
     Route: 065

REACTIONS (4)
  - Syncope [Unknown]
  - Off label use [Unknown]
  - Hypotension [Unknown]
  - Bradycardia [Recovering/Resolving]
